FAERS Safety Report 4322030-0 (Version None)
Quarter: 2004Q1

REPORT INFORMATION
  Report Type: 
  Country: None (occurrence: None)
  Receive Date: 20040319
  Receipt Date: 20040312
  Transmission Date: 20041129
  Serious: Yes (Hospitalization)
  Sender: FDA-Public Use
  Company Number: NSADSS2002037226

PATIENT
  Age: 73 Year
  Sex: Female

DRUGS (1)
  1. LEUSTATIN [Suspect]
     Indication: HAIRY CELL LEUKAEMIA
     Dosage: 6 MG, 7 IN 7 DAY, INTRAVENOUS DRIP
     Route: 041

REACTIONS (7)
  - COMMUNICATION DISORDER [None]
  - LETHARGY [None]
  - MENTAL IMPAIRMENT [None]
  - METABOLIC ENCEPHALOPATHY [None]
  - RENAL FAILURE [None]
  - THROMBOCYTOPENIA [None]
  - VASCULITIS [None]
